FAERS Safety Report 25211387 (Version 1)
Quarter: 2025Q2

REPORT INFORMATION
  Report Type: Spontaneous
  Country: US (occurrence: US)
  Receive Date: 20250417
  Receipt Date: 20250417
  Transmission Date: 20250717
  Serious: No
  Sender: AMGEN
  Company Number: US-AMGEN-USASP2025073393

PATIENT
  Sex: Female

DRUGS (2)
  1. PROLIA [Suspect]
     Active Substance: DENOSUMAB
     Indication: Leukaemia
     Route: 065
     Dates: start: 20250220
  2. GLEEVEC [Concomitant]
     Active Substance: IMATINIB MESYLATE
     Indication: Leukaemia
     Dosage: 300 MILLIGRAM, QD
     Route: 065

REACTIONS (1)
  - Gingivitis [Not Recovered/Not Resolved]

NARRATIVE: CASE EVENT DATE: 20250224
